FAERS Safety Report 10898191 (Version 1)
Quarter: 2015Q1

REPORT INFORMATION
  Report Type: Spontaneous
  Country: US (occurrence: None)
  Receive Date: 20150302
  Receipt Date: 20150302
  Transmission Date: 20150721
  Serious: No
  Sender: FDA-Public Use
  Company Number: None

PATIENT
  Age: 46 Year
  Sex: Female

DRUGS (1)
  1. COPAXONE [Suspect]
     Active Substance: GLATIRAMER ACETATE
     Indication: MULTIPLE SCLEROSIS
     Route: 058
     Dates: start: 20140513

REACTIONS (4)
  - Hypoaesthesia [None]
  - Disease recurrence [None]
  - Gait disturbance [None]
  - No therapeutic response [None]

NARRATIVE: CASE EVENT DATE: 20140527
